FAERS Safety Report 21979503 (Version 2)
Quarter: 2023Q1

REPORT INFORMATION
  Report Type: Spontaneous
  Country: PL (occurrence: None)
  Receive Date: 20230210
  Receipt Date: 20230216
  Transmission Date: 20230417
  Serious: Yes (Life-Threatening, Hospitalization, Other)
  Sender: FDA-Public Use
  Company Number: 2023A029506

PATIENT
  Age: 38 Year
  Sex: Female

DRUGS (19)
  1. QUETIAPINE FUMARATE [Suspect]
     Active Substance: QUETIAPINE FUMARATE
     Indication: Schizophrenia
     Route: 048
  2. DICLOFENAC [Suspect]
     Active Substance: DICLOFENAC
  3. PERINDOPRIL [Suspect]
     Active Substance: PERINDOPRIL
  4. ZUCLOPENTHIXOL [Suspect]
     Active Substance: ZUCLOPENTHIXOL
  5. DIAZEPAM [Suspect]
     Active Substance: DIAZEPAM
  6. KETOPROFEN [Suspect]
     Active Substance: KETOPROFEN
  7. BISOPROLOL [Suspect]
     Active Substance: BISOPROLOL
  8. CHLORPROTHIXENE [Suspect]
     Active Substance: CHLORPROTHIXENE
  9. HALOPERIDOL [Suspect]
     Active Substance: HALOPERIDOL
  10. CARBAMAZEPINE [Suspect]
     Active Substance: CARBAMAZEPINE
  11. PERAZINE [Suspect]
     Active Substance: PERAZINE
  12. ETHYL ALCOHOL [Suspect]
     Active Substance: ALCOHOL
  13. IBUPROFEN [Suspect]
     Active Substance: IBUPROFEN
  14. ACEMETACIN [Suspect]
     Active Substance: ACEMETACIN
  15. INDAPAMIDE [Suspect]
     Active Substance: INDAPAMIDE
  16. ZUCLOPENTHIXOL [Suspect]
     Active Substance: ZUCLOPENTHIXOL
  17. ASPIRIN [Suspect]
     Active Substance: ASPIRIN
  18. LEVOMEPROMAZINE [Suspect]
     Active Substance: LEVOMEPROMAZINE
  19. VALPROIC ACID [Suspect]
     Active Substance: VALPROIC ACID

REACTIONS (4)
  - Intentional overdose [Unknown]
  - Suicide attempt [Unknown]
  - Toxicity to various agents [Unknown]
  - Drug abuse [Unknown]

NARRATIVE: CASE EVENT DATE: 20170801
